FAERS Safety Report 23012449 (Version 2)
Quarter: 2023Q4

REPORT INFORMATION
  Report Type: Spontaneous
  Country: US (occurrence: US)
  Receive Date: 20230930
  Receipt Date: 20231005
  Transmission Date: 20240109
  Serious: No
  Sender: FDA-Public Use
  Company Number: US-AMGEN-USASP2023173871

PATIENT

DRUGS (2)
  1. OTEZLA [Suspect]
     Active Substance: APREMILAST
     Indication: Ulcer
     Dosage: UNK
     Route: 065
  2. OTEZLA [Suspect]
     Active Substance: APREMILAST
     Indication: Off label use

REACTIONS (7)
  - Depression [Unknown]
  - Eczema [Recovered/Resolved]
  - Arthralgia [Unknown]
  - Mouth ulceration [Unknown]
  - Genital ulceration [Unknown]
  - Off label use [Unknown]
  - Drug effective for unapproved indication [Unknown]
